FAERS Safety Report 4583109-1 (Version None)
Quarter: 2005Q1

REPORT INFORMATION
  Report Type: 
  Country: None (occurrence: None)
  Receive Date: 20050125
  Receipt Date: 20041018
  Transmission Date: 20050727
  Serious: No
  Sender: FDA-Public Use
  Company Number: USA041079861

PATIENT
  Age: 62 Year
  Sex: Female

DRUGS (4)
  1. FORTEO [Suspect]
     Indication: OSTEOPOROSIS
     Dates: start: 20040907
  2. CELEBREX [Concomitant]
  3. ASPIRIN [Concomitant]
  4. CALCIUM CARBONATE [Concomitant]

REACTIONS (3)
  - INJECTION SITE DERMATITIS [None]
  - INJECTION SITE HAEMORRHAGE [None]
  - NERVOUSNESS [None]
